FAERS Safety Report 8418598-5 (Version None)
Quarter: 2012Q2

REPORT INFORMATION
  Report Type: 
  Country: None (occurrence: None)
  Receive Date: 20120607
  Receipt Date: 20120528
  Transmission Date: 20120825
  Serious: Yes (Hospitalization)
  Sender: FDA-Public Use
  Company Number: CA-BRISTOL-MYERS SQUIBB COMPANY-15155781

PATIENT
  Age: 51 Year
  Sex: Female

DRUGS (5)
  1. ARAVA [Suspect]
  2. CELEBREX [Concomitant]
  3. HYDROCHLOROTHIAZDE TAB [Concomitant]
  4. ORENCIA [Suspect]
     Indication: RHEUMATOID ARTHRITIS
     Dosage: TOTAL INF 40; THERAPY DATES:19MAY10,LAST INF ON 13AUG2010,22DEC11,27APR12
     Route: 042
     Dates: start: 20090202
  5. TYLENOL W/ CODEINE NO. 3 [Concomitant]

REACTIONS (6)
  - VIRAL INFECTION [None]
  - STOMATITIS [None]
  - NASOPHARYNGITIS [None]
  - PNEUMONIA [None]
  - FULL BLOOD COUNT DECREASED [None]
  - ORAL MUCOSAL BLISTERING [None]
